FAERS Safety Report 7765672 (Version 4)
Quarter: 2013Q1

REPORT INFORMATION
  Report Type: Spontaneous
  Country: US (occurrence: US)
  Receive Date: 20110119
  Receipt Date: 20130201
  Transmission Date: 20140127
  Serious: Yes (Hospitalization)
  Sender: FDA-Public Use
  Company Number: US-ASTRAZENECA-2011SE01951

PATIENT
  Age: 53 Year
  Sex: Female
  Weight: 56.2 kg

DRUGS (8)
  1. SEROQUEL [Suspect]
     Indication: PSYCHOTIC DISORDER
     Route: 048
  2. SEROQUEL [Suspect]
     Indication: DEPRESSION
     Route: 048
  3. SEROQUEL [Suspect]
     Indication: PSYCHOTIC DISORDER
     Route: 048
  4. SEROQUEL [Suspect]
     Indication: DEPRESSION
     Route: 048
  5. LEXAPRO [Concomitant]
     Indication: DEPRESSION
  6. LIPITOR [Concomitant]
  7. ALBUTEROL [Concomitant]
  8. IPRATROPIUM [Concomitant]
     Indication: CHRONIC OBSTRUCTIVE PULMONARY DISEASE

REACTIONS (10)
  - Psychotic disorder [Unknown]
  - Depression [Unknown]
  - Abdominal discomfort [Unknown]
  - Condition aggravated [Unknown]
  - Impaired driving ability [Unknown]
  - Dysphonia [Unknown]
  - Dementia [Unknown]
  - Nervousness [Unknown]
  - Chronic obstructive pulmonary disease [Unknown]
  - Drug dose omission [Unknown]
